FAERS Safety Report 14686212 (Version 1)
Quarter: 2018Q1

REPORT INFORMATION
  Report Type: Spontaneous
  Country: US (occurrence: US)
  Receive Date: 20180326
  Receipt Date: 20180326
  Transmission Date: 20180509
  Serious: No
  Sender: FDA-Public Use
  Company Number: None

PATIENT
  Age: 54 Year
  Sex: Female
  Weight: 74.25 kg

DRUGS (6)
  1. MAXZIDE [Concomitant]
     Active Substance: HYDROCHLOROTHIAZIDE\TRIAMTERENE
  2. LEXAPRO [Concomitant]
     Active Substance: ESCITALOPRAM OXALATE
  3. VITAMIN D [Concomitant]
     Active Substance: CHOLECALCIFEROL
  4. ATENOLOL. [Concomitant]
     Active Substance: ATENOLOL
  5. OTEZLA [Suspect]
     Active Substance: APREMILAST
     Indication: PSORIASIS
     Dosage: ?          QUANTITY:1 TABLET(S);?
     Route: 048
     Dates: start: 20180310, end: 20180315
  6. LEVOTHYROXINE. [Concomitant]
     Active Substance: LEVOTHYROXINE

REACTIONS (7)
  - Diarrhoea [None]
  - Upper respiratory tract infection [None]
  - Nausea [None]
  - Headache [None]
  - Depression [None]
  - Cough [None]
  - Feeling abnormal [None]

NARRATIVE: CASE EVENT DATE: 20180315
